FAERS Safety Report 10492721 (Version 1)
Quarter: 2014Q4

REPORT INFORMATION
  Report Type: Spontaneous
  Country: US (occurrence: US)
  Receive Date: 20141002
  Receipt Date: 20141002
  Transmission Date: 20150528
  Serious: No
  Sender: FDA-Public Use
  Company Number: US-GLAXOSMITHKLINE-A1074579A

PATIENT
  Age: 14 Year
  Sex: Male

DRUGS (3)
  1. ANTIBIOTICS [Concomitant]
     Active Substance: UNSPECIFIED INGREDIENT
  2. ADVAIR HFA [Suspect]
     Active Substance: FLUTICASONE PROPIONATE\SALMETEROL XINAFOATE
     Indication: BRONCHITIS CHRONIC
     Dosage: 1PUFF PER DAY
     Route: 055
     Dates: start: 20140505
  3. NASAL SPRAY [Concomitant]
     Active Substance: UNSPECIFIED INGREDIENT

REACTIONS (4)
  - Insomnia [Unknown]
  - Tremor [Unknown]
  - Feeling jittery [Unknown]
  - Product quality issue [Unknown]
